FAERS Safety Report 5677587-4 (Version None)
Quarter: 2008Q1

REPORT INFORMATION
  Report Type: 
  Country: None (occurrence: None)
  Receive Date: 20080324
  Receipt Date: 20080311
  Transmission Date: 20080703
  Serious: Yes (Hospitalization)
  Sender: FDA-Public Use
  Company Number: AU-AMGEN-US267835

PATIENT
  Sex: Male

DRUGS (13)
  1. PANITUMUMAB [Suspect]
     Indication: COLORECTAL CANCER
     Route: 042
     Dates: start: 20060922, end: 20080206
  2. IRINOTECAN HCL [Concomitant]
     Dates: start: 20060922, end: 20080206
  3. FLUOROURACIL [Concomitant]
     Dates: start: 20060922, end: 20080206
  4. LEUCOVORIN CALCIUM [Concomitant]
     Dates: start: 20060922, end: 20080206
  5. NEXIUM [Concomitant]
     Route: 048
     Dates: start: 20061007
  6. COLOXYL WITH SENNA [Concomitant]
     Route: 048
     Dates: start: 20061007, end: 20080304
  7. MAXOLON [Concomitant]
     Route: 048
     Dates: start: 20070924, end: 20080229
  8. ALDACTONE [Concomitant]
     Route: 048
     Dates: start: 20080226
  9. PANADOL [Concomitant]
     Route: 048
     Dates: start: 20080106, end: 20080302
  10. CELEBREX [Concomitant]
     Route: 048
     Dates: start: 20080204, end: 20080227
  11. ACETAMINOPHEN W/ CODEINE [Concomitant]
     Route: 048
     Dates: start: 20080205
  12. OXYCONTIN [Concomitant]
     Route: 048
     Dates: start: 20080220, end: 20080227
  13. OXYNORM [Concomitant]
     Route: 048
     Dates: start: 20080221, end: 20080225

REACTIONS (2)
  - METASTASES TO BONE [None]
  - MUSCULOSKELETAL PAIN [None]
